FAERS Safety Report 23445884 (Version 3)
Quarter: 2024Q1

REPORT INFORMATION
  Report Type: Report from Study
  Country: US (occurrence: US)
  Receive Date: 20240126
  Receipt Date: 20240228
  Transmission Date: 20240410
  Serious: Yes (Hospitalization, Other)
  Sender: FDA-Public Use
  Company Number: US-TAKEDA-2024TUS002328

PATIENT
  Age: 73 Year
  Sex: Female

DRUGS (4)
  1. FRUQUINTINIB [Suspect]
     Active Substance: FRUQUINTINIB
     Indication: Rectal cancer
     Dosage: 5 MILLIGRAM
     Route: 048
     Dates: start: 20240102, end: 20240116
  2. FRUQUINTINIB [Suspect]
     Active Substance: FRUQUINTINIB
     Dosage: 4 MILLIGRAM, QD
     Route: 048
     Dates: start: 20240129
  3. FRUQUINTINIB [Suspect]
     Active Substance: FRUQUINTINIB
     Dosage: 4 MILLIGRAM, QD
     Route: 048
     Dates: end: 20240209
  4. DULOXETINE HYDROCHLORIDE [Concomitant]
     Active Substance: DULOXETINE HYDROCHLORIDE
     Dosage: 30 MILLIGRAM
     Route: 048

REACTIONS (13)
  - Anaemia [Recovered/Resolved]
  - Hypophagia [Recovered/Resolved]
  - Gait inability [Recovered/Resolved]
  - Pneumonia [Recovered/Resolved]
  - Neuropathy peripheral [Unknown]
  - Somnolence [Unknown]
  - Gastrointestinal pain [Not Recovered/Not Resolved]
  - Cancer pain [Unknown]
  - Pain [Recovering/Resolving]
  - Dysphonia [Not Recovered/Not Resolved]
  - Fatigue [Not Recovered/Not Resolved]
  - Asthenia [Recovering/Resolving]
  - Aphonia [Recovered/Resolved]

NARRATIVE: CASE EVENT DATE: 20240102
